FAERS Safety Report 9649189 (Version 2)
Quarter: 2014Q2

REPORT INFORMATION
  Report Type: Spontaneous
  Country: IT (occurrence: IT)
  Receive Date: 20131028
  Receipt Date: 20140411
  Transmission Date: 20141212
  Serious: Yes (Hospitalization)
  Sender: FDA-Public Use
  Company Number: IT-ACTAVIS-2013-19439

PATIENT
  Age: 81 Year
  Sex: Female

DRUGS (8)
  1. GABAPENTIN (UNKNOWN) [Suspect]
     Indication: MUSCULOSKELETAL PAIN
     Dosage: 600 MG, DAILY
     Route: 048
     Dates: start: 20130915, end: 20130921
  2. LEXIL [Suspect]
     Indication: ANXIETY
     Dosage: 16 MG, DAILY
     Route: 048
     Dates: start: 20110921
  3. EUTIROX [Concomitant]
     Indication: PRODUCT USED FOR UNKNOWN INDICATION
     Dosage: 100 MCG, UNK
     Route: 048
  4. PANTORC [Concomitant]
     Indication: PRODUCT USED FOR UNKNOWN INDICATION
     Dosage: 40 MG, UNK
     Route: 048
  5. DILATREND [Concomitant]
     Indication: PRODUCT USED FOR UNKNOWN INDICATION
     Dosage: 25 MG, UNK
     Route: 048
  6. LEVOPRAID                          /00314301/ [Concomitant]
     Indication: PRODUCT USED FOR UNKNOWN INDICATION
     Dosage: UNK, UNK
     Route: 048
  7. ELOPRAM                            /00582602/ [Concomitant]
     Indication: PRODUCT USED FOR UNKNOWN INDICATION
     Dosage: 30 DF, UNK
     Route: 048
  8. EFFERALGAN CODEIN [Concomitant]
     Indication: PRODUCT USED FOR UNKNOWN INDICATION
     Dosage: 1590 MG, UNK
     Route: 048

REACTIONS (2)
  - Bradyphrenia [Recovered/Resolved]
  - Sopor [Recovered/Resolved]
